FAERS Safety Report 12165998 (Version 1)
Quarter: 2016Q1

REPORT INFORMATION
  Report Type: Report from Study
  Country: US (occurrence: US)
  Receive Date: 20160309
  Receipt Date: 20160309
  Transmission Date: 20160526
  Serious: No
  Sender: FDA-Public Use
  Company Number: PHEH2016US005679

PATIENT
  Sex: Male
  Weight: 103.8 kg

DRUGS (1)
  1. GILENYA [Suspect]
     Active Substance: FINGOLIMOD HYDROCHLORIDE
     Indication: MULTIPLE SCLEROSIS
     Dosage: 0.5 MG, QD
     Route: 048
     Dates: start: 20151121

REACTIONS (5)
  - Increased appetite [Unknown]
  - Infrequent bowel movements [Unknown]
  - Abdominal distension [Unknown]
  - Constipation [Unknown]
  - Weight increased [Unknown]
